FAERS Safety Report 4336773-6 (Version None)
Quarter: 2004Q2

REPORT INFORMATION
  Report Type: 
  Country: None (occurrence: None)
  Receive Date: 20040407
  Receipt Date: 20040326
  Transmission Date: 20050107
  Serious: Yes (Hospitalization)
  Sender: FDA-Public Use
  Company Number: US-JNJFOC-20040306456

PATIENT
  Age: 58 Year
  Sex: Female

DRUGS (1)
  1. DURAGESIC [Suspect]
     Indication: BACK PAIN
     Dosage: SEE IMAGE
     Route: 062
     Dates: start: 20040307

REACTIONS (9)
  - CHEST PAIN [None]
  - ERYTHEMA [None]
  - FEELING ABNORMAL [None]
  - MEMORY IMPAIRMENT [None]
  - OEDEMA PERIPHERAL [None]
  - RASH MACULAR [None]
  - REFUSAL OF TREATMENT BY PATIENT [None]
  - THINKING ABNORMAL [None]
  - URINARY INCONTINENCE [None]
